FAERS Safety Report 5631954-3 (Version None)
Quarter: 2008Q1

REPORT INFORMATION
  Report Type: 
  Country: None (occurrence: None)
  Receive Date: 20080220
  Receipt Date: 20080211
  Transmission Date: 20080703
  Serious: Yes (Other)
  Sender: FDA-Public Use
  Company Number: US-ELI_LILLY_AND_COMPANY-US200802002529

PATIENT
  Age: 61 Year
  Sex: Female

DRUGS (6)
  1. ALIMTA [Suspect]
     Dosage: 500 MG/M2, OTHER
     Route: 042
     Dates: start: 20080107
  2. NEULASTA [Concomitant]
  3. VITAMIN B-12 [Concomitant]
  4. BENADRYL [Concomitant]
  5. KYTRIL [Concomitant]
  6. DEXAMETHASONE TAB [Concomitant]

REACTIONS (1)
  - RESPIRATORY DISTRESS [None]
